FAERS Safety Report 8711666 (Version 3)
Quarter: 2013Q3

REPORT INFORMATION
  Report Type: Report from Study
  Country: US (occurrence: US)
  Receive Date: 20120807
  Receipt Date: 20130828
  Transmission Date: 20140515
  Serious: Yes (Life-Threatening, Hospitalization, Disabling, Other)
  Sender: FDA-Public Use
  Company Number: US-ACTELION-A-US2012-69497

PATIENT
  Age: 74 Year
  Sex: Male

DRUGS (14)
  1. TRACLEER [Suspect]
     Indication: PULMONARY ARTERIAL HYPERTENSION
     Dosage: 125 MG, BID
     Route: 048
     Dates: start: 2010
  2. TRACLEER [Suspect]
     Dosage: 62.5 MG, BID
     Route: 048
     Dates: start: 20100415, end: 2010
  3. TORSEMIDE [Suspect]
     Dosage: 100 MG, BID
     Dates: start: 2002, end: 201207
  4. COUMADIN [Concomitant]
     Dosage: 2.5 MG, 4 X WK
     Dates: start: 1991
  5. GLIPIZIDE ER [Concomitant]
     Dosage: 10 MG, BID
  6. ISOSORBIDE [Concomitant]
     Dosage: 30 MG, UNK
  7. METFORMIN [Concomitant]
     Indication: ESSENTIAL HYPERTENSION
     Dosage: 1000 MG, BID
     Dates: start: 1993
  8. POTASSIUM [Concomitant]
     Dosage: 10 MEQ, QD
  9. PRAVASTATIN [Concomitant]
     Dosage: 40 MG, QD
  10. SPIRONOLACTONE [Concomitant]
     Dosage: 25 MG, BID
  11. DUONEB [Concomitant]
     Dosage: 1 UNK, UNK
  12. NITROGLYCERINE [Concomitant]
     Dosage: 0.4 MG, UNK
  13. MUCINEX [Concomitant]
     Dosage: 5 MG, 3 X WK
  14. OXYGEN [Concomitant]
     Dosage: 2.5 L, PER MIN

REACTIONS (10)
  - Muscle spasms [Recovered/Resolved]
  - Pain [Recovered/Resolved]
  - Diarrhoea [Not Recovered/Not Resolved]
  - Blood glucose increased [Not Recovered/Not Resolved]
  - Gastrooesophageal reflux disease [Not Recovered/Not Resolved]
  - Respiratory tract infection [Recovered/Resolved]
  - Conduction disorder [Not Recovered/Not Resolved]
  - Hip fracture [Recovering/Resolving]
  - Fall [Recovered/Resolved]
  - Dehydration [Unknown]
